FAERS Safety Report 8033878-3 (Version None)
Quarter: 2012Q1

REPORT INFORMATION
  Report Type: 
  Country: None (occurrence: None)
  Receive Date: 20120110
  Receipt Date: 20120103
  Transmission Date: 20120608
  Serious: No
  Sender: FDA-Public Use
  Company Number: US-PFIZER INC-2011307449

PATIENT
  Sex: Female
  Weight: 81.633 kg

DRUGS (4)
  1. VENLAFAXINE HYDROCHLORIDE [Concomitant]
     Dosage: 75 MG, DAILY
  2. HYDROCHLOROTHIAZIDE [Concomitant]
     Indication: DIURETIC THERAPY
     Dosage: 50 MG, DAILY
  3. ZITHROMAX [Suspect]
     Indication: COUGH
     Dosage: UNK
     Dates: start: 20110101, end: 20110101
  4. SYNTHROID [Concomitant]
     Indication: HYPOTHYROIDISM
     Dosage: UNK

REACTIONS (1)
  - DRUG INEFFECTIVE [None]
